FAERS Safety Report 25014190 (Version 1)
Quarter: 2025Q1

REPORT INFORMATION
  Report Type: Spontaneous
  Country: US (occurrence: US)
  Receive Date: 20250226
  Receipt Date: 20250226
  Transmission Date: 20250409
  Serious: Yes (Other)
  Sender: BAXTER
  Company Number: US-BAXTER-2025BAX011821

PATIENT

DRUGS (1)
  1. CLINIMIX [Suspect]
     Active Substance: ALANINE\ARGININE\CALCIUM CHLORIDE\DEXTROSE\DEXTROSE MONOHYDRATE\GLYCINE\HISTIDINE\ISOLEUCINE\LEUCINE
     Indication: Parenteral nutrition
     Route: 065

REACTIONS (3)
  - Embolism [Unknown]
  - Product dispensing error [Unknown]
  - Wrong technique in product usage process [Unknown]
